FAERS Safety Report 8942896 (Version 1)
Quarter: 2012Q4

REPORT INFORMATION
  Report Type: 
  Country: US (occurrence: US)
  Receive Date: 20121204
  Receipt Date: 20121204
  Transmission Date: 20130627
  Serious: Yes (Life-Threatening, Hospitalization)
  Sender: FDA-Public Use
  Company Number: US-SANOFI-AVENTIS-2012SA085716

PATIENT
  Age: 82 Year
  Sex: Male
  Weight: 100 kg

DRUGS (5)
  1. LASIX [Suspect]
     Route: 065
     Dates: end: 20120709
  2. LASIX [Suspect]
     Route: 065
     Dates: start: 20120709
  3. ASPIRIN [Suspect]
     Route: 065
  4. XARELTO [Suspect]
     Indication: ATRIAL FIBRILLATION
     Route: 048
     Dates: start: 20120201, end: 20120712
  5. XARELTO [Suspect]
     Indication: CEREBROVASCULAR ACCIDENT PROPHYLAXIS
     Route: 048
     Dates: start: 20120201, end: 20120712

REACTIONS (7)
  - Shock haemorrhagic [Unknown]
  - Gastrointestinal haemorrhage [Unknown]
  - Acute respiratory failure [Unknown]
  - Abdominal pain [Unknown]
  - Dizziness [Unknown]
  - Hypotension [Unknown]
  - Renal failure acute [Unknown]
